FAERS Safety Report 9886886 (Version 5)
Quarter: 2014Q2

REPORT INFORMATION
  Report Type: Report from Study
  Country: UG (occurrence: UG)
  Receive Date: 20140210
  Receipt Date: 20140506
  Transmission Date: 20141212
  Serious: Yes (Life-Threatening, Other)
  Sender: FDA-Public Use
  Company Number: UG-BRISTOL-MYERS SQUIBB COMPANY-17227166

PATIENT
  Age: 34 Year
  Sex: Female
  Weight: 39 kg

DRUGS (8)
  1. ETOPOSIDE [Suspect]
     Indication: KAPOSI^S SARCOMA
     Dosage: LAST DOSE: 04DEC2012 RESTARTED ON 07JAN13 WITH IOWER DOSE OF 50MG RECENT DOSE: 11MAR2013
     Route: 048
     Dates: start: 20121115
  2. ATRIPLA [Suspect]
     Indication: HIV INFECTION
     Dosage: LAST DOSE: 10DEC2012
     Route: 048
     Dates: start: 20121114
  3. ISONIAZID [Suspect]
     Indication: TUBERCULOSIS
     Dosage: LAST DOSE:31OCT12
     Route: 048
  4. ETHAMBUTOL [Concomitant]
     Indication: TUBERCULOSIS
     Route: 048
  5. RIFAMPICIN [Concomitant]
     Indication: TUBERCULOSIS
  6. PYRAZINAMIDE [Concomitant]
     Indication: TUBERCULOSIS
     Dosage: LAST DOSE: 10DEC12
     Route: 048
  7. PYRIDOXINE [Concomitant]
     Indication: NEUROPATHY PERIPHERAL
     Dosage: LAST DOSE: 10DEC12
     Route: 048
  8. TRAMADOL [Concomitant]
     Indication: PAIN
     Dosage: LAST DOSE: 04DEC12
     Route: 048

REACTIONS (9)
  - Hyponatraemia [Recovered/Resolved]
  - Neutropenia [Recovered/Resolved]
  - Burning sensation [Unknown]
  - Diarrhoea [Recovering/Resolving]
  - Muscular weakness [Recovering/Resolving]
  - Malaise [Recovering/Resolving]
  - Vomiting [Recovering/Resolving]
  - Pyrexia [Recovering/Resolving]
  - Hypokalaemia [Recovering/Resolving]
